FAERS Safety Report 24547700 (Version 1)
Quarter: 2024Q4

REPORT INFORMATION
  Report Type: Spontaneous
  Country: FR (occurrence: FR)
  Receive Date: 20241025
  Receipt Date: 20241025
  Transmission Date: 20250115
  Serious: Yes (Disabling, Other)
  Sender: SANDOZ
  Company Number: FR-MLMSERVICE-20171102-0948765-4

PATIENT
  Age: 44 Year
  Sex: Male

DRUGS (13)
  1. ADRIACIN [Suspect]
     Active Substance: DOXORUBICIN HYDROCHLORIDE
     Indication: Peripheral T-cell lymphoma unspecified stage IV
     Dosage: UNK, CYCLIC (4 CYCLES OF CHOEP)
     Route: 065
  2. ADCETRIS [Suspect]
     Active Substance: BRENTUXIMAB VEDOTIN
     Indication: Peripheral T-cell lymphoma unspecified stage IV
     Dosage: UNK, CYCLIC (4 CYCLES)
     Route: 041
     Dates: start: 20150416
  3. BENDAMUSTINE [Suspect]
     Active Substance: BENDAMUSTINE
     Indication: Peripheral T-cell lymphoma unspecified stage IV
     Dosage: UNK, CYCLIC (3 CYCLES)
     Route: 065
  4. CARBOPLATIN [Suspect]
     Active Substance: CARBOPLATIN
     Indication: Peripheral T-cell lymphoma unspecified stage IV
     Dosage: UNK, CYCLIC (2 CYCLES OF DHAC)
     Route: 065
  5. CYCLOPHOSPHAMIDE [Suspect]
     Active Substance: CYCLOPHOSPHAMIDE
     Dosage: UNK, CYCLIC (1 CYCLE OF CEP)
     Route: 065
  6. CYCLOPHOSPHAMIDE [Suspect]
     Active Substance: CYCLOPHOSPHAMIDE
     Indication: Peripheral T-cell lymphoma unspecified stage IV
     Dosage: UNK, CYCLIC (4 CYCLES OF CHOEP)
     Route: 065
  7. CYTARABINE [Suspect]
     Active Substance: CYTARABINE
     Indication: Peripheral T-cell lymphoma unspecified stage IV
     Dosage: UNK, CYCLIC (2 CYCLES OF DHAC)
     Route: 065
  8. DECADRON (DEXAMETHASONE SODIUM PHOSPHATE) [Suspect]
     Active Substance: DEXAMETHASONE SODIUM PHOSPHATE
     Indication: Peripheral T-cell lymphoma unspecified stage IV
     Dosage: UNK, CYCLIC (2 CYCLES OF DHAC)
     Route: 065
  9. ETOPOSIDE [Suspect]
     Active Substance: ETOPOSIDE
     Dosage: 1 CYCLE OF CEP
     Route: 065
  10. ETOPOSIDE [Suspect]
     Active Substance: ETOPOSIDE
     Indication: Peripheral T-cell lymphoma unspecified stage IV
     Dosage: UNK, CYCLIC ( 4 CYCLES OF CHOEP PLUS ETOPOSIDE)
     Route: 065
  11. PREDNISONE [Suspect]
     Active Substance: PREDNISONE
     Dosage: UNK UNK, CYCLIC (1 CYCLE OF CEP)
     Route: 065
  12. PREDNISONE [Suspect]
     Active Substance: PREDNISONE
     Indication: Peripheral T-cell lymphoma unspecified stage IV
     Dosage: UNK UNK, CYCLIC (4 CYCLES OF CHOEP)
     Route: 065
  13. VINCRISTINE SULFATE [Suspect]
     Active Substance: VINCRISTINE SULFATE
     Indication: Peripheral T-cell lymphoma unspecified stage IV
     Dosage: UNK, CYCLIC (4 CYCLES OF CHOEP)
     Route: 065

REACTIONS (2)
  - Cytomegalovirus chorioretinitis [Not Recovered/Not Resolved]
  - Blindness [Unknown]
